FAERS Safety Report 24039261 (Version 2)
Quarter: 2024Q3

REPORT INFORMATION
  Report Type: Spontaneous
  Country: DE (occurrence: DE)
  Receive Date: 20240702
  Receipt Date: 20240711
  Transmission Date: 20241017
  Serious: Yes (Hospitalization, Other)
  Sender: SANDOZ
  Company Number: DE-002147023-PHHY2011DE17401

PATIENT
  Age: 17 Year
  Sex: Male
  Weight: 68 kg

DRUGS (6)
  1. METAMIZOLE [Suspect]
     Active Substance: METAMIZOLE
     Indication: Procedural pain
     Dosage: UNK
     Route: 065
  2. METAMIZOLE [Suspect]
     Active Substance: METAMIZOLE
     Indication: Femur fracture
  3. NALOXONE [Suspect]
     Active Substance: NALOXONE
     Indication: Femur fracture
     Dosage: 1 DF, BID
     Route: 065
  4. NOVALGINA [Suspect]
     Active Substance: ACETAMINOPHEN\CAFFEINE
     Indication: Femur fracture
     Dosage: 4 X 30 DROPS
     Route: 065
  5. VOLTAREN [Suspect]
     Active Substance: DICLOFENAC SODIUM
     Indication: Femur fracture
     Dosage: 1 DF, TID
     Route: 065
  6. PANTOPRAZOLE [Concomitant]
     Active Substance: PANTOPRAZOLE
     Indication: Product used for unknown indication
     Dosage: 20 MG DAILY
     Route: 065

REACTIONS (10)
  - Neutropenia [Recovered/Resolved]
  - Pyrexia [Recovered/Resolved]
  - Chills [Recovered/Resolved]
  - Odynophagia [Recovered/Resolved]
  - Dysphagia [Recovering/Resolving]
  - Fatigue [Recovering/Resolving]
  - Agranulocytosis [Recovered/Resolved]
  - Alanine aminotransferase increased [Unknown]
  - Gamma-glutamyltransferase increased [Unknown]
  - Splenomegaly [Unknown]
